FAERS Safety Report 7459898-5 (Version None)
Quarter: 2011Q2

REPORT INFORMATION
  Report Type: 
  Country: None (occurrence: None)
  Receive Date: 20110427
  Receipt Date: 20110412
  Transmission Date: 20111010
  Serious: Yes (Other)
  Sender: FDA-Public Use
  Company Number: CL-308-2011

PATIENT
  Age: 35 Year
  Sex: Female

DRUGS (2)
  1. AMOXICILLIN [Concomitant]
  2. METRONIDAZOLE [Suspect]
     Indication: TOOTH INFECTION
     Dosage: 200 MG TDS
     Dates: start: 20101207

REACTIONS (3)
  - CEREBELLAR SYNDROME [None]
  - VESTIBULAR DISORDER [None]
  - VERTIGO [None]
